FAERS Safety Report 24528938 (Version 2)
Quarter: 2024Q4

REPORT INFORMATION
  Report Type: Spontaneous
  Country: US (occurrence: US)
  Receive Date: 20241021
  Receipt Date: 20241022
  Transmission Date: 20250115
  Serious: Yes (Other)
  Sender: PFIZER
  Company Number: US-PFIZER INC-PV202400134823

PATIENT
  Age: 83 Year
  Sex: Male
  Weight: 77.4 kg

DRUGS (6)
  1. VYNDAMAX [Suspect]
     Active Substance: TAFAMIDIS
     Indication: Acquired ATTR amyloidosis
     Dosage: TAKE 1 CAPSULE BY MOUTH 1 TIME A DAY. DISP: 90 CAPSULE, RFL: 3
     Route: 048
     Dates: start: 20230301
  2. VYNDAMAX [Suspect]
     Active Substance: TAFAMIDIS
     Dosage: ONE 61 MG TAFAMIDIS CAPSULE ORALLY ONCE DAILY.
     Route: 048
     Dates: start: 20240617
  3. DOFETILIDE [Concomitant]
     Active Substance: DOFETILIDE
     Dosage: TAKE 1 CAPSULE (250 MCG) BY MOUTH EVERY 12 (TWELVE) HOURS ORAL. DISP: 180 CAPSULE, RFL: 1
     Route: 048
     Dates: start: 20240216, end: 20240808
  4. LEVOTHYROXINE [Concomitant]
     Active Substance: LEVOTHYROXINE
     Dosage: TAKE 1 TABLET (75 MCG) BY MOUTH ONCE DAILY ORAL
     Route: 048
     Dates: start: 20220905
  5. SPIRONOLACTONE [Concomitant]
     Active Substance: SPIRONOLACTONE
     Dosage: TAKE 1 TABLET (25 MG) BY MOUTH ONCE DAILY ORAL. DISP: 90 TABLET, RFL: 3
     Route: 048
     Dates: start: 20231023, end: 20240812
  6. SPIRONOLACTONE [Concomitant]
     Active Substance: SPIRONOLACTONE
     Dosage: 25 MG, DAILY

REACTIONS (1)
  - Cardiac failure congestive [Unknown]

NARRATIVE: CASE EVENT DATE: 20240306
